FAERS Safety Report 7862477-9 (Version None)
Quarter: 2011Q4

REPORT INFORMATION
  Report Type: 
  Country: None (occurrence: None)
  Receive Date: 20111027
  Receipt Date: 20101103
  Transmission Date: 20120403
  Serious: No
  Sender: FDA-Public Use
  Company Number: US-AMGEN-USASP2010003273

PATIENT
  Age: 64 Year
  Sex: Female

DRUGS (1)
  1. ENBREL [Suspect]
     Indication: RHEUMATOID ARTHRITIS
     Dates: start: 20101019

REACTIONS (5)
  - RHINORRHOEA [None]
  - HYPERSENSITIVITY [None]
  - SINUS CONGESTION [None]
  - COUGH [None]
  - NASOPHARYNGITIS [None]
